FAERS Safety Report 10874297 (Version 5)
Quarter: 2017Q3

REPORT INFORMATION
  Report Type: Report from Study
  Country: None (occurrence: US)
  Receive Date: 20150227
  Receipt Date: 20170921
  Transmission Date: 20171127
  Serious: Yes (Other)
  Sender: FDA-Public Use
  Company Number: US-ABBVIE-15K-163-1350645-00

PATIENT
  Sex: Female

DRUGS (18)
  1. DILTIAZEM. [Concomitant]
     Active Substance: DILTIAZEM
     Indication: PRODUCT USED FOR UNKNOWN INDICATION
     Dosage: DAILY
     Route: 048
  2. MULTIVITAMIN [Concomitant]
     Active Substance: VITAMINS
     Indication: PRODUCT USED FOR UNKNOWN INDICATION
     Route: 048
  3. HYOSCYAMINE. [Concomitant]
     Active Substance: HYOSCYAMINE
     Indication: PRODUCT USED FOR UNKNOWN INDICATION
  4. QUESTRAN [Concomitant]
     Active Substance: CHOLESTYRAMINE
     Indication: PRODUCT USED FOR UNKNOWN INDICATION
  5. PROTONIX [Concomitant]
     Active Substance: PANTOPRAZOLE SODIUM
     Indication: GASTROOESOPHAGEAL REFLUX DISEASE
  6. BENTYL [Concomitant]
     Active Substance: DICYCLOMINE HYDROCHLORIDE
     Indication: ABDOMINAL PAIN
  7. CALCIUM [Concomitant]
     Active Substance: CALCIUM
     Indication: PRODUCT USED FOR UNKNOWN INDICATION
  8. HUMIRA [Suspect]
     Active Substance: ADALIMUMAB
     Indication: COLITIS ULCERATIVE
     Route: 058
  9. IRON [Concomitant]
     Active Substance: IRON
     Indication: PRODUCT USED FOR UNKNOWN INDICATION
     Dosage: PEDIATRIC DOSE
     Route: 048
  10. CANASA [Concomitant]
     Active Substance: MESALAMINE
     Indication: PRODUCT USED FOR UNKNOWN INDICATION
  11. DUONEB [Concomitant]
     Active Substance: ALBUTEROL SULFATE\IPRATROPIUM BROMIDE
     Indication: ASTHMA
  12. IRON [Concomitant]
     Active Substance: IRON
     Indication: PRODUCT USED FOR UNKNOWN INDICATION
  13. SINGULAIR [Concomitant]
     Active Substance: MONTELUKAST SODIUM
     Indication: ASTHMA
  14. HUMIRA [Suspect]
     Active Substance: ADALIMUMAB
     Indication: CROHN^S DISEASE
     Route: 058
     Dates: start: 201301
  15. METHOTREXATE. [Suspect]
     Active Substance: METHOTREXATE
     Indication: CROHN^S DISEASE
     Route: 065
     Dates: end: 201410
  16. SYMBICORT [Concomitant]
     Active Substance: BUDESONIDE\FORMOTEROL FUMARATE DIHYDRATE
     Indication: ASTHMA
     Route: 048
  17. CARDIZEM CD [Concomitant]
     Active Substance: DILTIAZEM HYDROCHLORIDE
     Indication: CARDIOMYOPATHY
  18. ALBUTEROL. [Concomitant]
     Active Substance: ALBUTEROL
     Indication: ASTHMA

REACTIONS (32)
  - Lymphadenopathy [Not Recovered/Not Resolved]
  - Sinus headache [Unknown]
  - Dyspnoea [Recovering/Resolving]
  - Arthritis [Unknown]
  - Blood calcium decreased [Recovering/Resolving]
  - Onychoclasis [Not Recovered/Not Resolved]
  - Gastrointestinal haemorrhage [Unknown]
  - Osteoporosis [Unknown]
  - Intestinal fistula [Not Recovered/Not Resolved]
  - Mobility decreased [Recovered/Resolved]
  - Dyspnoea [Recovered/Resolved]
  - Anal abscess [Recovered/Resolved]
  - Anal ulcer [Not Recovered/Not Resolved]
  - Vaginal ulceration [Not Recovered/Not Resolved]
  - Anaemia [Unknown]
  - Arthritis [Recovered/Resolved]
  - Joint effusion [Unknown]
  - Arthritis enteropathic [Not Recovered/Not Resolved]
  - Arthralgia [Recovered/Resolved]
  - Impaired healing [Unknown]
  - Mobility decreased [Unknown]
  - Enterocutaneous fistula [Unknown]
  - Frequent bowel movements [Unknown]
  - Crohn^s disease [Not Recovered/Not Resolved]
  - Erythropenia [Unknown]
  - Breast cyst [Not Recovered/Not Resolved]
  - Device occlusion [Unknown]
  - Abscess intestinal [Recovered/Resolved]
  - Hyperaesthesia [Not Recovered/Not Resolved]
  - Defaecation urgency [Not Recovered/Not Resolved]
  - Arthralgia [Recovered/Resolved]
  - Gait disturbance [Unknown]

NARRATIVE: CASE EVENT DATE: 2013
